FAERS Safety Report 24153796 (Version 2)
Quarter: 2024Q3

REPORT INFORMATION
  Report Type: Report from Study
  Country: US (occurrence: US)
  Receive Date: 20240730
  Receipt Date: 20240805
  Transmission Date: 20241017
  Serious: Yes (Other)
  Sender: ABBVIE
  Company Number: US-ABBVIE-5831001

PATIENT
  Sex: Male

DRUGS (11)
  1. VENCLEXTA [Suspect]
     Active Substance: VENETOCLAX
     Indication: Acute myeloid leukaemia
     Dosage: FORM STRENGTH: 100 MG?TAKE 6 TABLET(S) BY MOUTH  DAILY
     Route: 048
  2. VENCLEXTA [Suspect]
     Active Substance: VENETOCLAX
     Indication: Acute myeloid leukaemia
     Dosage: FORM STRENGTH: 100 MG?TEXT: TAKE 4 TABLET(S) BY MOUTH  1 TIMES DAILY
     Route: 048
     Dates: start: 20191220
  3. VENCLEXTA [Suspect]
     Active Substance: VENETOCLAX
     Indication: Acute myeloid leukaemia
     Dosage: FORM STRENGTH: 100 MG?THEN TAKE 2 TABLET(S) BY  MOUTH ON DAY 2
     Route: 048
  4. VENCLEXTA [Suspect]
     Active Substance: VENETOCLAX
     Indication: Acute myeloid leukaemia
     Dosage: FREQUENCY TEXT: 4 TABLET(S) BY  MOUTH EVERY DAY DAY  3?FORM STRENGTH: 100 MG
     Route: 048
  5. VENCLEXTA [Suspect]
     Active Substance: VENETOCLAX
     Indication: Acute myeloid leukaemia
     Route: 048
  6. VENCLEXTA [Suspect]
     Active Substance: VENETOCLAX
     Indication: Acute myeloid leukaemia
     Dosage: FORM STRENGTH: 100 MG TAKE 1 TABLET BY MOUTH ON DAY 1
     Route: 048
  7. AMIKACIN [Concomitant]
     Active Substance: AMIKACIN
     Indication: Pneumonia bacterial
     Route: 042
  8. MEROPENEM [Concomitant]
     Active Substance: MEROPENEM
     Indication: Pneumonia bacterial
     Route: 042
  9. ATIVAN [Concomitant]
     Active Substance: LORAZEPAM
     Indication: Product used for unknown indication
  10. ROPINIROLE [Concomitant]
     Active Substance: ROPINIROLE
     Indication: Product used for unknown indication
  11. AMBIEN [Concomitant]
     Active Substance: ZOLPIDEM TARTRATE
     Indication: Product used for unknown indication

REACTIONS (5)
  - Pneumonia [Recovered/Resolved]
  - Cerebrovascular disorder [Unknown]
  - Hypoacusis [Unknown]
  - Hypertension [Unknown]
  - Deafness [Not Recovered/Not Resolved]

NARRATIVE: CASE EVENT DATE: 20220101
